FAERS Safety Report 5032580-X (Version None)
Quarter: 2006Q2

REPORT INFORMATION
  Report Type: 
  Country: None (occurrence: None)
  Receive Date: 20060622
  Receipt Date: 20060607
  Transmission Date: 20061013
  Serious: Yes (Hospitalization, Other)
  Sender: FDA-Public Use
  Company Number: PHBS2006JP08734

PATIENT
  Age: 90 Year
  Sex: Female

DRUGS (4)
  1. AMLODIN [Concomitant]
     Dosage: 2.5 MG, UNK
     Route: 048
     Dates: start: 20030201
  2. DAONIL [Concomitant]
     Dosage: 1.25 MG, UNK
     Route: 048
     Dates: start: 20021201
  3. DIOVAN [Suspect]
     Indication: HYPERTENSION
     Dosage: 40 MG/DAY
     Route: 048
     Dates: end: 20020901
  4. DIOVAN [Suspect]
     Dosage: 80 MG/DAY
     Route: 048
     Dates: start: 20051025

REACTIONS (6)
  - APHASIA [None]
  - CEREBRAL INFARCTION [None]
  - DIZZINESS [None]
  - DYSARTHRIA [None]
  - PARALYSIS [None]
  - SPEECH DISORDER [None]
